FAERS Safety Report 8140527-2 (Version None)
Quarter: 2012Q1

REPORT INFORMATION
  Report Type: 
  Country: None (occurrence: None)
  Receive Date: 20120216
  Receipt Date: 20120209
  Transmission Date: 20120608
  Serious: Yes (Death)
  Sender: FDA-Public Use
  Company Number: ZA-CELGENEUS-143-CCAZA-11122446

PATIENT
  Age: 51 Year
  Sex: Female
  Weight: 105 kg

DRUGS (6)
  1. RIDAQ [Concomitant]
     Dosage: 12.5 MILLIGRAM
     Route: 065
  2. METFORMIN HCL [Concomitant]
     Dosage: 1700 MILLIGRAM
     Route: 048
  3. ADALAT CC [Concomitant]
     Dosage: 30 MILLIGRAM
     Route: 065
  4. SLOW-K [Concomitant]
     Route: 048
  5. AZACITIDINE [Suspect]
     Indication: MYELODYSPLASTIC SYNDROME
     Dosage: 75 MICROGRAM/SQ. METER
     Route: 041
     Dates: start: 20111205, end: 20111209
  6. GLICLAZIDE [Concomitant]
     Dosage: 500 MILLIGRAM
     Route: 048

REACTIONS (1)
  - HAEMATEMESIS [None]
